FAERS Safety Report 9596553 (Version 1)
Quarter: 2013Q4

REPORT INFORMATION
  Report Type: Report from Study
  Country: AR (occurrence: AR)
  Receive Date: 20131004
  Receipt Date: 20131004
  Transmission Date: 20140711
  Serious: Yes (Other)
  Sender: FDA-Public Use
  Company Number: PHHY2013AR111033

PATIENT
  Sex: Male

DRUGS (1)
  1. DIOVAN D [Suspect]
     Indication: HYPERTENSION
     Dosage: 1 DF (320/25 MG), DAILY
     Route: 048

REACTIONS (2)
  - Weight increased [Recovered/Resolved]
  - Metabolic disorder [Unknown]
